FAERS Safety Report 25608041 (Version 2)
Quarter: 2025Q3

REPORT INFORMATION
  Report Type: Spontaneous
  Country: EU (occurrence: EU)
  Receive Date: 20250725
  Receipt Date: 20250812
  Transmission Date: 20251020
  Serious: Yes (Life-Threatening, Hospitalization, Other)
  Sender: MYLAN
  Company Number: EU-SOL-20250238

PATIENT
  Age: 38 Year
  Sex: Female

DRUGS (32)
  1. ADRENALIN [Suspect]
     Active Substance: EPINEPHRINE
     Indication: Resuscitation
  2. ADRENALIN [Suspect]
     Active Substance: EPINEPHRINE
     Indication: Cardiac arrest
     Route: 065
  3. ADRENALIN [Suspect]
     Active Substance: EPINEPHRINE
     Route: 065
  4. ADRENALIN [Suspect]
     Active Substance: EPINEPHRINE
  5. OXYGEN [Suspect]
     Active Substance: OXYGEN
     Indication: Pulmonary oedema
  6. OXYGEN [Suspect]
     Active Substance: OXYGEN
     Route: 055
  7. OXYGEN [Suspect]
     Active Substance: OXYGEN
     Route: 055
  8. OXYGEN [Suspect]
     Active Substance: OXYGEN
  9. THIOPENTAL [Suspect]
     Active Substance: THIOPENTAL
     Indication: Acute respiratory failure
  10. THIOPENTAL [Suspect]
     Active Substance: THIOPENTAL
     Route: 065
  11. THIOPENTAL [Suspect]
     Active Substance: THIOPENTAL
     Route: 065
  12. THIOPENTAL [Suspect]
     Active Substance: THIOPENTAL
  13. FENTANYL [Suspect]
     Active Substance: FENTANYL
     Indication: Acute respiratory failure
  14. FENTANYL [Suspect]
     Active Substance: FENTANYL
     Route: 065
  15. FENTANYL [Suspect]
     Active Substance: FENTANYL
     Route: 065
  16. FENTANYL [Suspect]
     Active Substance: FENTANYL
  17. ROCURONIUM BROMIDE [Suspect]
     Active Substance: ROCURONIUM BROMIDE
     Indication: Acute respiratory failure
  18. ROCURONIUM BROMIDE [Suspect]
     Active Substance: ROCURONIUM BROMIDE
     Route: 065
  19. ROCURONIUM BROMIDE [Suspect]
     Active Substance: ROCURONIUM BROMIDE
     Route: 065
  20. ROCURONIUM BROMIDE [Suspect]
     Active Substance: ROCURONIUM BROMIDE
  21. TORECAN [Suspect]
     Active Substance: THIETHYLPERAZINE MALATE
     Indication: Pulmonary oedema
  22. TORECAN [Suspect]
     Active Substance: THIETHYLPERAZINE MALATE
     Route: 042
  23. TORECAN [Suspect]
     Active Substance: THIETHYLPERAZINE MALATE
     Route: 042
  24. TORECAN [Suspect]
     Active Substance: THIETHYLPERAZINE MALATE
  25. FUROSEMIDE [Suspect]
     Active Substance: FUROSEMIDE
     Indication: Pulmonary oedema
  26. FUROSEMIDE [Suspect]
     Active Substance: FUROSEMIDE
     Route: 042
  27. FUROSEMIDE [Suspect]
     Active Substance: FUROSEMIDE
     Route: 042
  28. FUROSEMIDE [Suspect]
     Active Substance: FUROSEMIDE
  29. MORPHINE [Suspect]
     Active Substance: MORPHINE
     Indication: Pulmonary oedema
  30. MORPHINE [Suspect]
     Active Substance: MORPHINE
     Route: 042
  31. MORPHINE [Suspect]
     Active Substance: MORPHINE
     Route: 042
  32. MORPHINE [Suspect]
     Active Substance: MORPHINE

REACTIONS (9)
  - Acute respiratory failure [Recovering/Resolving]
  - Cardiac arrest [Recovering/Resolving]
  - Cardiomyopathy [Recovering/Resolving]
  - Drug ineffective [Recovering/Resolving]
  - Pulseless electrical activity [Recovered/Resolved]
  - Bradycardia [Recovering/Resolving]
  - Ventricular tachycardia [Recovering/Resolving]
  - Maternal exposure during pregnancy [Recovering/Resolving]
  - Off label use [Unknown]
